FAERS Safety Report 7910526-1 (Version None)
Quarter: 2011Q4

REPORT INFORMATION
  Report Type: 
  Country: None (occurrence: None)
  Receive Date: 20111111
  Receipt Date: 20111031
  Transmission Date: 20120403
  Serious: Yes (Other)
  Sender: FDA-Public Use
  Company Number: PHHY2011AU58611

PATIENT
  Sex: Female

DRUGS (4)
  1. STOG [Concomitant]
  2. LEFLUNOMIDE [Concomitant]
     Dosage: UNK
     Route: 048
  3. GLEEVEC [Suspect]
     Dosage: 400 MG, DAILY
     Route: 048
     Dates: start: 20110501, end: 20110615
  4. GLEEVEC [Suspect]
     Indication: CHRONIC MYELOID LEUKAEMIA
     Dosage: 400 MG, DAILY
     Route: 048
     Dates: start: 20110401, end: 20110615

REACTIONS (7)
  - SWELLING FACE [None]
  - DRUG INTOLERANCE [None]
  - FATIGUE [None]
  - OEDEMA PERIPHERAL [None]
  - NAUSEA [None]
  - OEDEMA [None]
  - SKIN ULCER [None]
